FAERS Safety Report 21232135 (Version 1)
Quarter: 2022Q3

REPORT INFORMATION
  Report Type: Spontaneous
  Country: US (occurrence: None)
  Receive Date: 20220818
  Receipt Date: 20220818
  Transmission Date: 20221026
  Serious: No
  Sender: FDA-Public Use
  Company Number: None

PATIENT
  Age: 78 Year
  Sex: 0

DRUGS (1)
  1. AMBRISENTAN [Suspect]
     Active Substance: AMBRISENTAN
     Indication: Pulmonary arterial hypertension
     Dosage: FREQUENCY : DAILY;?
     Route: 048

REACTIONS (14)
  - Nasal congestion [None]
  - Dyspnoea [None]
  - Dyspnoea exertional [None]
  - Decreased activity [None]
  - Fatigue [None]
  - Dizziness [None]
  - Face oedema [None]
  - Oedema peripheral [None]
  - Oedema peripheral [None]
  - Oedema peripheral [None]
  - Feeling abnormal [None]
  - Urinary tract infection [None]
  - Cough [None]
  - Exercise tolerance decreased [None]

NARRATIVE: CASE EVENT DATE: 20220818
